FAERS Safety Report 7937788-9 (Version None)
Quarter: 2011Q4

REPORT INFORMATION
  Report Type: 
  Country: None (occurrence: None)
  Receive Date: 20111123
  Receipt Date: 20111114
  Transmission Date: 20120403
  Serious: Yes (Hospitalization)
  Sender: FDA-Public Use
  Company Number: CA-ASTRAZENECA-2011SE68861

PATIENT
  Age: 77 Year
  Sex: Female
  Weight: 95 kg

DRUGS (7)
  1. PLAVIX [Concomitant]
     Route: 065
  2. AVAPRO [Concomitant]
     Route: 065
  3. LORAZEPAM [Concomitant]
  4. PANTOPRAZOLE [Concomitant]
  5. NEXIUM [Suspect]
     Route: 048
  6. SPIRONOLACTONE [Concomitant]
     Route: 065
  7. VERAPAMIL EXTENDED-RELEASE [Concomitant]
     Route: 065

REACTIONS (8)
  - NAUSEA [None]
  - OEDEMA PERIPHERAL [None]
  - OROPHARYNGEAL BLISTERING [None]
  - ERYTHEMA [None]
  - PRURITUS [None]
  - BLOOD PRESSURE INCREASED [None]
  - TREMOR [None]
  - CONFUSIONAL STATE [None]
